FAERS Safety Report 20853500 (Version 1)
Quarter: 2022Q2

REPORT INFORMATION
  Report Type: Spontaneous
  Country: US (occurrence: None)
  Receive Date: 20220518
  Receipt Date: 20220518
  Transmission Date: 20220721
  Serious: Yes (unspecified)
  Sender: FDA-Public Use
  Company Number: None

PATIENT
  Age: 42 Year
  Sex: Female
  Weight: 67.5 kg

DRUGS (1)
  1. ETHYL ALCOHOL ANTISEPTIC HAND SANITIZER [Suspect]
     Active Substance: ALCOHOL
     Indication: COVID-19
     Dates: start: 20220518

REACTIONS (3)
  - Eye irritation [None]
  - Product container seal issue [None]
  - Accidental exposure to product [None]

NARRATIVE: CASE EVENT DATE: 20220518
